FAERS Safety Report 8699640 (Version 2)
Quarter: 2012Q4

REPORT INFORMATION
  Report Type: 
  Country: AU (occurrence: AU)
  Receive Date: 20120802
  Receipt Date: 20120920
  Transmission Date: 20130627
  Serious: Yes (Hospitalization, Other)
  Sender: FDA-Public Use
  Company Number: AU-B.I. PHARMACEUTICALS,INC./RIDGEFIELD-2012-AU-01323AU

PATIENT
  Age: 70 Year

DRUGS (1)
  1. PRADAXA [Suspect]

REACTIONS (2)
  - Mesenteric haemorrhage [Unknown]
  - Pulmonary embolism [Unknown]
